FAERS Safety Report 9499124 (Version 2)
Quarter: 2013Q3

REPORT INFORMATION
  Report Type: Report from Study
  Country: CN (occurrence: CN)
  Receive Date: 20130904
  Receipt Date: 20130927
  Transmission Date: 20140515
  Serious: Yes (Death, Hospitalization)
  Sender: FDA-Public Use
  Company Number: CN-TEVA-429688USA

PATIENT
  Age: 65 Year
  Sex: Female
  Weight: 52 kg

DRUGS (9)
  1. BENDAMUSTINE HCL [Suspect]
     Indication: B-CELL SMALL LYMPHOCYTIC LYMPHOMA
     Route: 042
     Dates: start: 20130731, end: 20130822
  2. SODIUM BICARBONATE [Concomitant]
     Indication: CHEMOTHERAPY
     Dosage: 100 ML DAILY;
     Route: 042
     Dates: start: 20130731
  3. SODIUM BICARBONATE [Concomitant]
     Dosage: 100 ML DAILY;
     Route: 042
     Dates: start: 20130821, end: 20130822
  4. ALLOPURINOL [Concomitant]
     Indication: CHEMOTHERAPY
     Dosage: .3 MILLIGRAM DAILY;
     Route: 048
     Dates: start: 20130731, end: 20130801
  5. PANTOPRAZOLE [Concomitant]
     Indication: CHEMOTHERAPY
     Dosage: 40 MILLIGRAM DAILY;
     Route: 042
     Dates: start: 20130731, end: 20130801
  6. PANTOPRAZOLE [Concomitant]
     Dosage: 40 MILLIGRAM DAILY;
     Route: 042
     Dates: start: 20130821, end: 20130822
  7. REDUCED GLUTATHIONE HORMONE [Concomitant]
     Indication: CHEMOTHERAPY
     Dosage: 1.8 GRAM DAILY;
     Route: 042
     Dates: start: 20130731, end: 20130801
  8. REDUCED GLUTATHIONE HORMONE [Concomitant]
     Route: 042
     Dates: start: 20130821, end: 20130822
  9. RAMOSETRON [Concomitant]
     Indication: CHEMOTHERAPY
     Dosage: ONCE
     Route: 042
     Dates: start: 20130731

REACTIONS (2)
  - Pancytopenia [Not Recovered/Not Resolved]
  - Respiratory failure [Fatal]
